FAERS Safety Report 10009493 (Version 2)
Quarter: 2014Q1

REPORT INFORMATION
  Report Type: Spontaneous
  Country: US (occurrence: US)
  Receive Date: 20140312
  Receipt Date: 20140312
  Transmission Date: 20141002
  Serious: Yes (Other)
  Sender: FDA-Public Use
  Company Number: US-INCYTE CORPORATION-2012IN001183

PATIENT
  Age: 81 Year
  Sex: Female
  Weight: 58.95 kg

DRUGS (19)
  1. JAKAFI [Suspect]
     Indication: POLYCYTHAEMIA VERA
     Dosage: 20 MG, BID
     Route: 048
     Dates: start: 20120303, end: 201203
  2. JAKAFI [Suspect]
     Indication: MYELOID METAPLASIA
     Dosage: 20 MG, QD, QHS
     Route: 048
     Dates: start: 201203, end: 201205
  3. JAKAFI [Suspect]
     Indication: SPLENOMEGALY
     Dosage: 20 MG, BID
     Route: 048
     Dates: start: 20120517, end: 20120615
  4. JAKAFI [Suspect]
     Indication: MYELOPROLIFERATIVE DISORDER
     Dosage: 20 MG, QOD
     Route: 048
     Dates: start: 201206, end: 201207
  5. JAKAFI [Suspect]
     Dosage: 20 MG, BID FOR 2 DAYS (THIRD DAY OFF)
     Route: 048
     Dates: start: 20120724, end: 20120909
  6. TRACLEER [Concomitant]
     Indication: PULMONARY HYPERTENSION
  7. SYNTHROID [Concomitant]
  8. ALLOPURINOL [Concomitant]
  9. SODIUM BICARBONATE [Concomitant]
  10. METOPROLOL [Concomitant]
  11. DILTIAZEM [Concomitant]
  12. PROCRIT [Concomitant]
  13. IMODIUM [Concomitant]
  14. ANARESP [Concomitant]
     Indication: ANAEMIA
     Dosage: 100 MCG, Q2W
     Dates: start: 201003
  15. DIGOXIN [Concomitant]
  16. ASPIRIN [Concomitant]
  17. CALCIUM [Concomitant]
  18. LASIX [Concomitant]
  19. AMBIEN [Concomitant]

REACTIONS (8)
  - Anaemia [Recovered/Resolved]
  - Blood creatinine increased [Unknown]
  - Hyperkalaemia [Unknown]
  - Dyspnoea [Recovered/Resolved with Sequelae]
  - Fatigue [Unknown]
  - Dyspnoea exertional [Unknown]
  - Thrombocytosis [Unknown]
  - Dizziness [Recovered/Resolved]
